FAERS Safety Report 6247259-6 (Version None)
Quarter: 2009Q2

REPORT INFORMATION
  Report Type: 
  Country: None (occurrence: None)
  Receive Date: 20090624
  Receipt Date: 20090624
  Transmission Date: 20091009
  Serious: Yes (Life-Threatening, Hospitalization)
  Sender: FDA-Public Use
  Company Number: None

PATIENT
  Sex: Male
  Weight: 71 kg

DRUGS (7)
  1. CITALOPRAM HYDROBROMIDE [Suspect]
     Indication: DEPRESSION
  2. DIPHENHYDRAMINE HCL [Suspect]
     Indication: INSOMNIA
  3. TRAZODONE HCL [Suspect]
     Indication: INSOMNIA
  4. FLUOXETINE HCL [Suspect]
     Indication: DEPRESSION
  5. CLONAZEPAM [Suspect]
     Indication: ANXIETY
  6. ASPIRIN [Concomitant]
  7. OLANZAPINE [Concomitant]

REACTIONS (3)
  - DEPRESSED LEVEL OF CONSCIOUSNESS [None]
  - ELECTROCARDIOGRAM QT PROLONGED [None]
  - UNRESPONSIVE TO STIMULI [None]
